FAERS Safety Report 6015020-3 (Version None)
Quarter: 2008Q4

REPORT INFORMATION
  Report Type: 
  Country: None (occurrence: None)
  Receive Date: 20081221
  Receipt Date: 20081211
  Transmission Date: 20090506
  Serious: Yes (Other)
  Sender: FDA-Public Use
  Company Number: PHHY2008BR14452

PATIENT
  Age: 56 Year
  Sex: Female
  Weight: 64 kg

DRUGS (4)
  1. DIOVAN HCT [Suspect]
     Indication: HYPERTENSION
     Dosage: 160/12.5 MG DAILY
     Route: 048
     Dates: start: 20070101
  2. SELOZOK [Concomitant]
     Indication: CARDIAC DISORDER
     Dosage: 50 MG, QD
  3. TYLEX                              /00116401/ [Concomitant]
     Indication: PAIN
     Dosage: UNK
  4. LOXONIN [Concomitant]
     Indication: BACK DISORDER

REACTIONS (10)
  - ABDOMINAL PAIN UPPER [None]
  - BLOOD PRESSURE INCREASED [None]
  - FATIGUE [None]
  - INSOMNIA [None]
  - NAUSEA [None]
  - SCIATICA [None]
  - SURGERY [None]
  - URINARY RETENTION [None]
  - VOMITING [None]
  - WEIGHT INCREASED [None]
